FAERS Safety Report 8588524-7 (Version None)
Quarter: 2012Q3

REPORT INFORMATION
  Report Type: 
  Country: None (occurrence: None)
  Receive Date: 20120813
  Receipt Date: 20120802
  Transmission Date: 20120928
  Serious: Yes (Other)
  Sender: FDA-Public Use
  Company Number: JP-GENZYME-FABR-1002682

PATIENT
  Sex: Female

DRUGS (2)
  1. FABRAZYME [Suspect]
     Dosage: UNK
     Route: 042
     Dates: start: 20091118
  2. FABRAZYME [Suspect]
     Indication: FABRY'S DISEASE
     Dosage: 50 MG, Q2W
     Route: 042
     Dates: start: 20060926, end: 20091104

REACTIONS (2)
  - FABRY'S DISEASE [None]
  - CARDIAC HYPERTROPHY [None]
